FAERS Safety Report 16322327 (Version 3)
Quarter: 2019Q3

REPORT INFORMATION
  Report Type: Report from Study
  Country: DE (occurrence: DE)
  Receive Date: 20190516
  Receipt Date: 20190711
  Transmission Date: 20191004
  Serious: Yes (Death)
  Sender: FDA-Public Use
  Company Number: DE-ROCHE-2312396

PATIENT
  Sex: Female
  Weight: 46 kg

DRUGS (4)
  1. GODAMED [Concomitant]
     Active Substance: ASPIRIN
     Indication: THROMBOSIS
     Dosage: ONGOING
     Route: 048
     Dates: start: 19950101
  2. OCRELIZUMAB. [Suspect]
     Active Substance: OCRELIZUMAB
     Route: 042
     Dates: start: 20190207
  3. OCRELIZUMAB. [Suspect]
     Active Substance: OCRELIZUMAB
     Route: 042
     Dates: start: 20180807
  4. OCRELIZUMAB. [Suspect]
     Active Substance: OCRELIZUMAB
     Indication: MULTIPLE SCLEROSIS
     Route: 042
     Dates: start: 20180724

REACTIONS (1)
  - Angiosarcoma [Fatal]

NARRATIVE: CASE EVENT DATE: 20190228
